FAERS Safety Report 6656873-5 (Version None)
Quarter: 2010Q1

REPORT INFORMATION
  Report Type: 
  Country: None (occurrence: None)
  Receive Date: 20100329
  Receipt Date: 20100329
  Transmission Date: 20100710
  Serious: Yes (Other)
  Sender: FDA-Public Use
  Company Number: None

PATIENT
  Age: 39 Year
  Sex: Female
  Weight: 96.1626 kg

DRUGS (2)
  1. LEVAQUIN [Suspect]
     Indication: URINARY TRACT INFECTION
     Dosage: ONE TABLET DAILY PO
     Route: 048
     Dates: start: 20100318, end: 20100321
  2. LEVAQUIN [Suspect]
     Indication: URINARY TRACT INFECTION
     Dosage: ONE TABLET DAILY PO
     Route: 048
     Dates: start: 20100323, end: 20100324

REACTIONS (4)
  - BURNING SENSATION [None]
  - JOINT SWELLING [None]
  - OEDEMA PERIPHERAL [None]
  - PAIN IN EXTREMITY [None]
